FAERS Safety Report 24144664 (Version 2)
Quarter: 2024Q3

REPORT INFORMATION
  Report Type: Spontaneous
  Country: BR (occurrence: BR)
  Receive Date: 20240728
  Receipt Date: 20240812
  Transmission Date: 20241017
  Serious: Yes (Other)
  Sender: PFIZER
  Company Number: BR-PFIZER INC-202400222775

PATIENT
  Age: 53 Year
  Sex: Male
  Weight: 72.1 kg

DRUGS (2)
  1. RITUXIMAB [Suspect]
     Active Substance: RITUXIMAB
     Indication: Follicular lymphoma
     Dosage: 687.75 MG PER CYCLE
     Route: 042
     Dates: start: 20240716, end: 20240716
  2. RITUXIMAB [Suspect]
     Active Substance: RITUXIMAB
     Dosage: 687.75 MG PER CYCLE
     Route: 042
     Dates: start: 20240716, end: 20240716

REACTIONS (3)
  - Tremor [Recovered/Resolved]
  - Dizziness [Recovered/Resolved]
  - Blood pressure systolic increased [Recovered/Resolved]

NARRATIVE: CASE EVENT DATE: 20240716
